FAERS Safety Report 8851442 (Version 1)
Quarter: 2012Q4

REPORT INFORMATION
  Report Type: 
  Country: BR (occurrence: BR)
  Receive Date: 20121022
  Receipt Date: 20121022
  Transmission Date: 20130627
  Serious: Yes (Other)
  Sender: FDA-Public Use
  Company Number: BR-AMGEN-BRASP2012046743

PATIENT
  Age: 46 Year
  Sex: Female
  Weight: 64 kg

DRUGS (8)
  1. ENBREL [Suspect]
     Indication: RHEUMATOID ARTHRITIS
     Dosage: 50 mg, once weekly
     Route: 058
     Dates: start: 20120604
  2. METHOTREXATE [Concomitant]
     Indication: RHEUMATOID ARTHRITIS
     Dosage: 2.5 mg, UNK
  3. CYCLOBENZAPRINE [Concomitant]
     Indication: HYPERTENSION
     Dosage: 10 mg, UNK
  4. CHONDROITIN [Concomitant]
     Dosage: UNK UNK, UNK
  5. GLUCOSAMINE SULFATE [Concomitant]
     Dosage: UNK UNK, UNK
  6. CHLORTALIDONE [Concomitant]
     Dosage: 2.5 mg, UNK
  7. SIMVASTATIN [Concomitant]
     Indication: BLOOD CHOLESTEROL
     Dosage: 20 mg, UNK
  8. ATENOPRESS [Concomitant]
     Indication: HYPERTENSION
     Dosage: UNK

REACTIONS (3)
  - Urinary tract infection [Unknown]
  - Dysuria [Unknown]
  - Nasopharyngitis [Not Recovered/Not Resolved]
